FAERS Safety Report 9499192 (Version 1)
Quarter: 2013Q3

REPORT INFORMATION
  Report Type: Spontaneous
  Country: CA (occurrence: CA)
  Receive Date: 20130905
  Receipt Date: 20130905
  Transmission Date: 20140515
  Serious: Yes (Other)
  Sender: FDA-Public Use
  Company Number: CA-PAR PHARMACEUTICAL, INC-2013SCPR006142

PATIENT
  Sex: 0

DRUGS (1)
  1. CIPROFLOXACIN ER [Suspect]
     Indication: CYSTITIS
     Dosage: UNK, UNKNOWN
     Route: 048

REACTIONS (1)
  - Retinal detachment [Unknown]
